FAERS Safety Report 5137823-X (Version None)
Quarter: 2006Q4

REPORT INFORMATION
  Report Type: 
  Country: None (occurrence: None)
  Receive Date: 20061030
  Receipt Date: 20060119
  Transmission Date: 20070319
  Serious: No
  Sender: FDA-Public Use
  Company Number: US-GLAXOSMITHKLINE-A0590093A

PATIENT
  Age: 47 Year
  Sex: Female

DRUGS (1)
  1. ADVAIR HFA [Suspect]
     Indication: ASTHMA
     Dosage: 1PUFF TWICE PER DAY
     Route: 055
     Dates: start: 20010301, end: 20010301

REACTIONS (3)
  - EATING DISORDER [None]
  - MOUTH ULCERATION [None]
  - PHARYNGEAL ULCERATION [None]
